FAERS Safety Report 7737065-5 (Version None)
Quarter: 2011Q3

REPORT INFORMATION
  Report Type: 
  Country: None (occurrence: None)
  Receive Date: 20110908
  Receipt Date: 20110826
  Transmission Date: 20111222
  Serious: Yes (Hospitalization)
  Sender: FDA-Public Use
  Company Number: US-ELI_LILLY_AND_COMPANY-US201108008564

PATIENT
  Sex: Female

DRUGS (13)
  1. METOPROLOL TARTRATE [Concomitant]
  2. NORCO [Concomitant]
  3. IBUPROFEN [Concomitant]
  4. RECLAST [Concomitant]
  5. FORTEO [Suspect]
     Dosage: 20 UG, QD
     Dates: start: 20110824
  6. PRILOSEC [Concomitant]
  7. CALCIUM W/VITAMIN D NOS [Concomitant]
  8. CARTIA XT [Concomitant]
  9. FORTEO [Suspect]
     Indication: OSTEOPOROSIS
     Dosage: 20 UG, QD
     Dates: start: 20110725, end: 20110815
  10. FISH OIL [Concomitant]
  11. LISINOPRIL [Concomitant]
  12. MULTI-VITAMIN [Concomitant]
  13. CLARINEX [Concomitant]

REACTIONS (2)
  - STOMATITIS [None]
  - SCOLIOSIS [None]
